FAERS Safety Report 4400046-3 (Version None)
Quarter: 2004Q3

REPORT INFORMATION
  Report Type: 
  Country: None (occurrence: None)
  Receive Date: 20040714
  Receipt Date: 20040701
  Transmission Date: 20050211
  Serious: Yes (Hospitalization)
  Sender: FDA-Public Use
  Company Number: DE-JNJFOC-20040605857

PATIENT
  Age: 13 Year
  Sex: Male
  Weight: 46.1 kg

DRUGS (1)
  1. CONCERTA [Suspect]
     Indication: ATTENTION DEFICIT/HYPERACTIVITY DISORDER
     Dosage: 18 MG, IN 1 DAY, ORAL
     Route: 048
     Dates: end: 20040617

REACTIONS (2)
  - DIPLOPIA [None]
  - STRABISMUS [None]
